FAERS Safety Report 12565158 (Version 10)
Quarter: 2022Q2

REPORT INFORMATION
  Report Type: Spontaneous
  Country: US (occurrence: US)
  Receive Date: 20160718
  Receipt Date: 20220421
  Transmission Date: 20220721
  Serious: Yes (Other)
  Sender: FDA-Public Use
  Company Number: US-PFIZER INC-2016324767

PATIENT
  Age: 71 Year
  Sex: Female
  Weight: 81.19 kg

DRUGS (28)
  1. IBRANCE [Suspect]
     Active Substance: PALBOCICLIB
     Indication: Breast cancer metastatic
     Dosage: 125 MG, CYCLIC (ONCE A DAY FOR 21 DAYS AND THEN ONE WEEK OFF)
     Route: 048
     Dates: start: 201505
  2. IBRANCE [Suspect]
     Active Substance: PALBOCICLIB
     Dosage: 125 MG, CYCLIC (ONCE A DAY FOR 21 DAYS AND THEN ONE WEEK OFF)
     Route: 048
  3. IBRANCE [Suspect]
     Active Substance: PALBOCICLIB
     Dosage: 125 MG
     Dates: start: 20170929
  4. IBRANCE [Suspect]
     Active Substance: PALBOCICLIB
     Dosage: UNK
     Dates: start: 2017
  5. IBRANCE [Suspect]
     Active Substance: PALBOCICLIB
     Dosage: 125 MG, CYCLIC (ONCE A DAY FOR 21 DAYS AND THEN ONE WEEK OFF)
     Route: 048
     Dates: end: 201901
  6. IBRANCE [Suspect]
     Active Substance: PALBOCICLIB
     Dosage: 125 MG, CYCLIC (ONCE A DAY FOR 21 DAYS AND THEN ONE WEEK OFF)
     Route: 048
  7. IBRANCE [Suspect]
     Active Substance: PALBOCICLIB
     Dosage: 125 MG, CYCLIC (QD X 21/28 DAYS)
     Route: 048
     Dates: start: 20180510
  8. IBRANCE [Suspect]
     Active Substance: PALBOCICLIB
     Dosage: 125 MG(21 DAYS THEN OFF FOR A WEEK)
     Route: 048
  9. MODERNA COVID-19 VACCINE [Suspect]
     Active Substance: ELASOMERAN
     Indication: COVID-19 immunisation
     Dosage: DOSE 2, SINGLE
  10. MODERNA COVID-19 VACCINE [Suspect]
     Active Substance: ELASOMERAN
     Dosage: DOSE 3, SINGLE
  11. LETROZOLE [Concomitant]
     Active Substance: LETROZOLE
     Indication: Breast cancer metastatic
     Dosage: UNK
     Dates: start: 201502, end: 201701
  12. LETROZOLE [Concomitant]
     Active Substance: LETROZOLE
     Dosage: UNK
     Dates: start: 2017
  13. JANUVIA [Concomitant]
     Active Substance: SITAGLIPTIN PHOSPHATE
     Indication: Glucose tolerance impaired
     Dosage: UNK
     Dates: start: 201606, end: 201607
  14. JANUVIA [Concomitant]
     Active Substance: SITAGLIPTIN PHOSPHATE
     Indication: Diabetes mellitus
     Dosage: 100 MG
     Dates: start: 202105
  15. VITAMIN C [Concomitant]
     Active Substance: ASCORBIC ACID
     Dosage: 1000 MG
     Dates: start: 2016
  16. FIBER [Concomitant]
     Active Substance: PSYLLIUM HUSK
     Dosage: UNK
     Dates: start: 2016
  17. VITAMIN D [Concomitant]
     Active Substance: VITAMIN D NOS
     Dosage: UNK
  18. LOVAZA [Concomitant]
     Active Substance: OMEGA-3-ACID ETHYL ESTERS
     Indication: Cardiovascular event prophylaxis
     Dosage: 1 G, 2X/DAY
     Dates: start: 2008
  19. ASPIRIN [Concomitant]
     Active Substance: ASPIRIN
     Dosage: 81 MG, UNK
     Dates: start: 2008
  20. TYLENOL [Concomitant]
     Active Substance: ACETAMINOPHEN
     Dosage: UNK
  21. VITAMIN D3 [Concomitant]
     Active Substance: CHOLECALCIFEROL
     Dosage: 1000 DF
     Dates: start: 2016
  22. FASLODEX [Concomitant]
     Active Substance: FULVESTRANT
     Dosage: UNK UNK, MONTHLY(IM INJECTIONS INTO EACH BUTTOX ONCE A MONTH)
     Route: 030
     Dates: start: 201701
  23. CLARITHROMYCIN [Concomitant]
     Active Substance: CLARITHROMYCIN
     Indication: Urinary tract infection
     Dosage: 100 MG
     Dates: start: 20220415
  24. COLACE [Concomitant]
     Active Substance: DOCUSATE SODIUM
     Indication: Abdominal discomfort
     Dosage: UNK
  25. CANNABIDIOL\HERBALS [Concomitant]
     Active Substance: CANNABIDIOL\HERBALS
     Indication: Pain
     Dosage: UNK
  26. GABAPENTIN [Concomitant]
     Active Substance: GABAPENTIN
     Dosage: 100 MG
  27. NORVASC [Concomitant]
     Active Substance: AMLODIPINE BESYLATE
     Indication: Hypertension
     Dosage: 25 MG
     Dates: start: 20220316
  28. CALCIUM [Concomitant]
     Active Substance: CALCIUM
     Dosage: 1600 MG, DAILY

REACTIONS (23)
  - Necrosis [Unknown]
  - Pseudomonas infection [Unknown]
  - Neoplasm progression [Recovered/Resolved]
  - Rash [Not Recovered/Not Resolved]
  - Illness [Unknown]
  - Granuloma [Unknown]
  - Inflammation [Unknown]
  - Skin irritation [Unknown]
  - Infection [Unknown]
  - Rash pustular [Unknown]
  - Skin induration [Unknown]
  - Lymphatic disorder [Unknown]
  - Immune system disorder [Unknown]
  - Fistula [Unknown]
  - Disturbance in social behaviour [Unknown]
  - Hot flush [Not Recovered/Not Resolved]
  - Arthralgia [Not Recovered/Not Resolved]
  - Influenza like illness [Unknown]
  - Hiatus hernia [Unknown]
  - Urinary tract infection [Not Recovered/Not Resolved]
  - Sciatic nerve injury [Not Recovered/Not Resolved]
  - Muscle spasms [Unknown]
  - Pain in extremity [Unknown]

NARRATIVE: CASE EVENT DATE: 20150501
